FAERS Safety Report 6856466-0 (Version None)
Quarter: 2010Q3

REPORT INFORMATION
  Report Type: 
  Country: None (occurrence: None)
  Receive Date: 20100719
  Receipt Date: 20100708
  Transmission Date: 20110219
  Serious: Yes (Hospitalization)
  Sender: FDA-Public Use
  Company Number: FR-JNJFOC-20100703124

PATIENT
  Age: 46 Year
  Sex: Female

DRUGS (7)
  1. REMICADE [Suspect]
     Indication: PRODUCT USED FOR UNKNOWN INDICATION
     Route: 042
  2. REMICADE [Suspect]
     Dosage: 2 INFUSIONS
     Route: 042
  3. IMUREL [Concomitant]
  4. CORTANCYL [Concomitant]
  5. LEXOMIL [Concomitant]
  6. ALVERINE CITRATE [Concomitant]
  7. SIMETICONE [Concomitant]

REACTIONS (5)
  - ARTHRALGIA [None]
  - HEADACHE [None]
  - INFLAMMATION [None]
  - PYREXIA [None]
  - URTICARIA [None]
